FAERS Safety Report 14328998 (Version 2)
Quarter: 2017Q4

REPORT INFORMATION
  Report Type: Report from Study
  Country: US (occurrence: US)
  Receive Date: 20171227
  Receipt Date: 20171227
  Transmission Date: 20180321
  Serious: Yes (Other)
  Sender: FDA-Public Use
  Company Number: US-JNJFOC-20170902750

PATIENT
  Age: 68 Year
  Sex: Male

DRUGS (7)
  1. VIAGRA [Concomitant]
     Active Substance: SILDENAFIL CITRATE
  2. IMBRUVICA [Suspect]
     Active Substance: IBRUTINIB
     Indication: CHRONIC LYMPHOCYTIC LEUKAEMIA
     Route: 048
     Dates: start: 20170902
  3. IBUPROFEN. [Suspect]
     Active Substance: IBUPROFEN
     Route: 065
  4. HUMALOG [Concomitant]
     Active Substance: INSULIN LISPRO
  5. SIMVASTATIN. [Concomitant]
     Active Substance: SIMVASTATIN
  6. IBUPROFEN. [Suspect]
     Active Substance: IBUPROFEN
     Indication: PRODUCT USED FOR UNKNOWN INDICATION
     Route: 065
  7. IMBRUVICA [Suspect]
     Active Substance: IBRUTINIB
     Indication: CHRONIC LYMPHOCYTIC LEUKAEMIA
     Route: 048
     Dates: start: 20151117

REACTIONS (6)
  - Animal bite [Recovering/Resolving]
  - Lymphoedema [Unknown]
  - Impaired healing [Recovering/Resolving]
  - Peripheral swelling [Recovering/Resolving]
  - Red blood cell count decreased [Unknown]
  - Gastric haemorrhage [Unknown]

NARRATIVE: CASE EVENT DATE: 20170830
